FAERS Safety Report 7145966-4 (Version None)
Quarter: 2010Q4

REPORT INFORMATION
  Report Type: 
  Country: None (occurrence: None)
  Receive Date: 20101208
  Receipt Date: 20101124
  Transmission Date: 20110411
  Serious: Yes (Other)
  Sender: FDA-Public Use
  Company Number: US-SANOFI-AVENTIS-2010SA058991

PATIENT
  Age: 71 Year
  Sex: Male
  Weight: 203 kg

DRUGS (2)
  1. LANTUS [Suspect]
     Indication: TYPE 2 DIABETES MELLITUS
     Dosage: 3-4 YEARS DOSE:40 UNIT(S)
     Route: 058
  2. OPTICLICK [Suspect]
     Indication: TYPE 2 DIABETES MELLITUS
     Dosage: 3-4 YEARS

REACTIONS (2)
  - BLADDER CANCER [None]
  - LUNG CARCINOMA CELL TYPE UNSPECIFIED STAGE III [None]
